FAERS Safety Report 8601022 (Version 3)
Quarter: 2013Q1

REPORT INFORMATION
  Report Type: Spontaneous
  Country: US (occurrence: US)
  Receive Date: 20120606
  Receipt Date: 20130211
  Transmission Date: 20140127
  Serious: No
  Sender: FDA-Public Use
  Company Number: US-ASTRAZENECA-2012SE33283

PATIENT
  Age: 47 Year
  Sex: Female
  Weight: 68 kg

DRUGS (15)
  1. NEXIUM [Suspect]
     Route: 048
  2. PRILOSEC [Suspect]
     Indication: GASTROOESOPHAGEAL REFLUX DISEASE
     Dosage: GENERIC
     Route: 048
     Dates: start: 201203
  3. PRILOSEC [Suspect]
     Indication: GASTROOESOPHAGEAL REFLUX DISEASE
     Route: 048
  4. ATENOLOL [Concomitant]
     Indication: PALPITATIONS
  5. DEPO PROVERA [Concomitant]
     Indication: ENDOMETRIOSIS
     Dates: start: 1996
  6. SYNTHROID [Concomitant]
     Indication: AUTOIMMUNE THYROIDITIS
  7. FOLIC ACID [Concomitant]
     Indication: ANAEMIA
  8. VITAMIN 50000 [Concomitant]
     Dosage: ONCE A WEEK
  9. SOMA [Concomitant]
     Indication: MUSCLE SPASMS
  10. FENTANYL PATCH [Concomitant]
     Indication: BREAKTHROUGH PAIN
     Route: 065
  11. PRAVACHOL [Concomitant]
     Indication: BLOOD CHOLESTEROL ABNORMAL
  12. LEXAPRO [Concomitant]
  13. KLONOPIN [Concomitant]
     Dosage: THREE TIMES A DAY AS NEEDED
  14. AMITIZA [Concomitant]
     Indication: BOWEL MOVEMENT IRREGULARITY
  15. DONNATAL [Concomitant]
     Indication: DIARRHOEA
     Dosage: AS REQUIRED

REACTIONS (15)
  - Osteoporosis [Unknown]
  - Chest pain [Unknown]
  - Gastrooesophageal reflux disease [Unknown]
  - Migraine [Unknown]
  - Pain [Unknown]
  - Myalgia [Unknown]
  - Muscle spasms [Unknown]
  - Cluster headache [Unknown]
  - Fibromyalgia [Unknown]
  - Systemic lupus erythematosus [Unknown]
  - Nausea [Unknown]
  - Ulcer [Unknown]
  - Oesophageal pain [Unknown]
  - Drug ineffective [Unknown]
  - Drug dose omission [Unknown]
